FAERS Safety Report 4364598-4 (Version None)
Quarter: 2004Q2

REPORT INFORMATION
  Report Type: 
  Country: None (occurrence: None)
  Receive Date: 20040521
  Receipt Date: 20040510
  Transmission Date: 20050107
  Serious: Yes (Other)
  Sender: FDA-Public Use
  Company Number: 2004025614

PATIENT
  Age: 68 Year
  Sex: Female
  Weight: 100.6985 kg

DRUGS (9)
  1. NEURONTIN [Suspect]
     Indication: MIGRAINE
     Dosage: 3200 MG (800, QID), ORAL
     Route: 048
  2. ZOLMITRIPTAN (ZOLMITRIPTAN) [Suspect]
     Indication: MIGRAINE
     Dosage: 50 MG (DAILY), ORAL
     Route: 048
     Dates: start: 20040413, end: 20040414
  3. CLOPIDOGREL BISULFATE [Concomitant]
  4. ATENOLOL [Concomitant]
  5. ACETYLSALICYLIC ACID SRT [Concomitant]
  6. SIMVASTATIN [Concomitant]
  7. CELECOXIB (CELECOXIB) [Concomitant]
  8. METOCLOPRAMIDE [Concomitant]
  9. LEVOTHYROXINE SODIUM [Concomitant]

REACTIONS (4)
  - BLINDNESS [None]
  - NAUSEA [None]
  - VISUAL ACUITY REDUCED [None]
  - VOMITING [None]
